FAERS Safety Report 25750548 (Version 1)
Quarter: 2025Q3

REPORT INFORMATION
  Report Type: Report from Study
  Country: EG (occurrence: EG)
  Receive Date: 20250902
  Receipt Date: 20250902
  Transmission Date: 20251021
  Serious: Yes (Hospitalization)
  Sender: ROCHE
  Company Number: EG-ROCHE-10000373745

PATIENT
  Sex: Female

DRUGS (1)
  1. HERCEPTIN [Suspect]
     Active Substance: TRASTUZUMAB
     Indication: Breast cancer
     Route: 058
     Dates: start: 20240313, end: 20250123

REACTIONS (2)
  - Hemiparesis [Recovered/Resolved]
  - Cerebrovascular accident [Recovered/Resolved]

NARRATIVE: CASE EVENT DATE: 20241001
